FAERS Safety Report 12134374 (Version 2)
Quarter: 2016Q1

REPORT INFORMATION
  Report Type: Spontaneous
  Country: US (occurrence: US)
  Receive Date: 20160301
  Receipt Date: 20160301
  Transmission Date: 20160526
  Serious: Yes (Other)
  Sender: FDA-Public Use
  Company Number: US-PIRAMAL ENTERPRISES LIMITED-2016-PEL-000653

PATIENT

DRUGS (6)
  1. MAGNESIUM SULFATE. [Concomitant]
     Active Substance: MAGNESIUM SULFATE
     Indication: STATUS ASTHMATICUS
     Dosage: UNK
     Route: 042
  2. ISOFLURANE, USP (HUMAN) (ISOFLURANE) INJECTION, 100ML [Suspect]
     Active Substance: ISOFLURANE
     Indication: ANAESTHESIA
     Dosage: CONTINUOUS
  3. ALBUTEROL W/IPRATROPIUM [Concomitant]
     Active Substance: ALBUTEROL\IPRATROPIUM
     Indication: STATUS ASTHMATICUS
     Dosage: UNK
     Route: 065
  4. METHYLPREDNISOLONE. [Concomitant]
     Active Substance: METHYLPREDNISOLONE
     Indication: STATUS ASTHMATICUS
     Dosage: UNK
     Route: 042
  5. TERBUTALINE [Concomitant]
     Active Substance: TERBUTALINE
     Indication: STATUS ASTHMATICUS
     Dosage: UNK
     Route: 058
  6. ISOFLURANE, USP (HUMAN) (ISOFLURANE) INJECTION, 100ML [Suspect]
     Active Substance: ISOFLURANE
     Indication: STATUS ASTHMATICUS

REACTIONS (4)
  - Maternal exposure during pregnancy [Unknown]
  - Cerebral haemorrhage [None]
  - Mucosal haemorrhage [None]
  - Asthma [Unknown]
